FAERS Safety Report 8385532 (Version 3)
Quarter: 2012Q4

REPORT INFORMATION
  Report Type: 
  Country: US (occurrence: US)
  Receive Date: 20120202
  Receipt Date: 20121016
  Transmission Date: 20130627
  Serious: Yes (Death, Other)
  Sender: FDA-Public Use
  Company Number: US-ROCHE-1035806

PATIENT
  Age: 73 Year
  Sex: Male

DRUGS (5)
  1. AVASTIN [Suspect]
     Indication: PANCREATIC CARCINOMA
     Route: 042
     Dates: start: 20040513, end: 20050524
  2. AVASTIN [Suspect]
     Indication: METASTASES TO LIVER
  3. TAXOL [Concomitant]
  4. IRINOTECAN [Concomitant]
  5. DOCETAXEL [Concomitant]

REACTIONS (6)
  - Metastatic neoplasm [Fatal]
  - Neoplasm progression [Unknown]
  - Neutropenia [Unknown]
  - Pyrexia [Unknown]
  - Disease progression [Unknown]
  - Anaemia [Unknown]
